FAERS Safety Report 9084512 (Version 1)
Quarter: 2013Q1

REPORT INFORMATION
  Report Type: Spontaneous
  Country: CZ (occurrence: CZ)
  Receive Date: 20130218
  Receipt Date: 20130218
  Transmission Date: 20140127
  Serious: Yes (Other)
  Sender: FDA-Public Use
  Company Number: PHHY2013CZ014070

PATIENT
  Sex: Male

DRUGS (12)
  1. EXJADE [Suspect]
     Indication: MYELODYSPLASTIC SYNDROME
     Dosage: 2000 MG/DAY
  2. EXJADE [Suspect]
     Indication: REFRACTORY ANAEMIA WITH RINGED SIDEROBLASTS
     Dosage: 1500 MG/DAY
  3. EXJADE [Suspect]
     Indication: IRON OVERLOAD
  4. TRANSFUSIONS [Concomitant]
  5. TRITACE [Concomitant]
  6. CONCOR [Concomitant]
  7. GODASAL [Concomitant]
  8. TORVACARD [Concomitant]
  9. APO-ALLOPURINOL [Concomitant]
  10. DIAPREL [Concomitant]
  11. SIOFOR [Concomitant]
  12. LANZUL [Concomitant]

REACTIONS (4)
  - Ascites [Recovering/Resolving]
  - Oedema peripheral [Recovering/Resolving]
  - Blood creatinine increased [Unknown]
  - Anaemia [Unknown]
